FAERS Safety Report 15009599 (Version 1)
Quarter: 2018Q2

REPORT INFORMATION
  Report Type: Spontaneous
  Country: US (occurrence: US)
  Receive Date: 20180614
  Receipt Date: 20180614
  Transmission Date: 20180711
  Serious: No
  Sender: FDA-Public Use
  Company Number: US-ASTRAZENECA-2018SE68177

PATIENT
  Sex: Female

DRUGS (2)
  1. FASENRA [Suspect]
     Active Substance: BENRALIZUMAB
     Indication: ASTHMA
     Route: 058
     Dates: start: 2018
  2. PREDNISONE. [Concomitant]
     Active Substance: PREDNISONE
     Indication: ASTHMA
     Dosage: 5-10 MG FOR THE LAST 4-5 YEARS
     Route: 065

REACTIONS (4)
  - Dementia [Not Recovered/Not Resolved]
  - Off label use [Unknown]
  - Feeling abnormal [Not Recovered/Not Resolved]
  - Product use in unapproved indication [Unknown]
